FAERS Safety Report 15879343 (Version 1)
Quarter: 2019Q1

REPORT INFORMATION
  Report Type: Spontaneous
  Country: US (occurrence: US)
  Receive Date: 20190126
  Receipt Date: 20190126
  Transmission Date: 20190417
  Serious: Yes (Life-Threatening, Hospitalization, Disabling, Other)
  Sender: FDA-Public Use
  Company Number: None

PATIENT
  Age: 48 Year
  Sex: Female
  Weight: 74.25 kg

DRUGS (5)
  1. MELATONIN [Concomitant]
     Active Substance: MELATONIN
  2. POTASSIUM CHLORIDE SENNA [Concomitant]
  3. TYLENOL [Concomitant]
     Active Substance: ACETAMINOPHEN
  4. LOSATRAN POTASSIUM 25MG TABS [Suspect]
     Active Substance: LOSARTAN POTASSIUM
     Indication: BLOOD PRESSURE INADEQUATELY CONTROLLED
     Dosage: ?          QUANTITY:90 TABLET(S);?
     Route: 048
     Dates: start: 20181101, end: 20190125
  5. HYDRALAZINE POLYETHYLENENE GLYCOL [Concomitant]

REACTIONS (7)
  - Weight decreased [None]
  - Blood sodium increased [None]
  - Recalled product administered [None]
  - Product contamination [None]
  - Renal impairment [None]
  - Blister [None]
  - Product complaint [None]

NARRATIVE: CASE EVENT DATE: 20190125
